FAERS Safety Report 8790917 (Version 1)
Quarter: 2012Q4

REPORT INFORMATION
  Report Type: Spontaneous
  Country: US (occurrence: None)
  Receive Date: 20120906
  Receipt Date: 20120906
  Transmission Date: 20130627
  Serious: Yes (Hospitalization)
  Sender: FDA-Public Use
  Company Number: UTC-022506

PATIENT
  Age: 59 Year
  Sex: Male
  Weight: 98.6 kg

DRUGS (3)
  1. TYVASO (6 MICROGRAM, AEROSOL FOR INHALATION) (TREPROSTINIL SODIUM) [Suspect]
     Indication: PRIMARY PULMONARY HYPERTENSION
     Dosage: 216 mcg (54 mcg, 4 in 1 d), inhalation
     Route: 055
     Dates: start: 20120529, end: 20120823
  2. TRACLEER (BOSENTAN) [Concomitant]
  3. COUMADIN (WARFARIN SODIUM) [Concomitant]

REACTIONS (4)
  - Urosepsis [None]
  - Urinary tract infection [None]
  - Drug dose omission [None]
  - Haemodynamic instability [None]
